FAERS Safety Report 14924526 (Version 2)
Quarter: 2018Q2

REPORT INFORMATION
  Report Type: Spontaneous
  Country: JP (occurrence: JP)
  Receive Date: 20180522
  Receipt Date: 20180606
  Transmission Date: 20180711
  Serious: Yes (Hospitalization)
  Sender: FDA-Public Use
  Company Number: JP-SUCAMPO PHARMACEUTICALS INC.-SPI201800503

PATIENT
  Age: 8 Decade
  Sex: Male

DRUGS (3)
  1. AMITIZA [Suspect]
     Active Substance: LUBIPROSTONE
     Indication: CONSTIPATION
     Dosage: 24 MCG, QD
     Route: 048
     Dates: start: 201802, end: 201804
  2. TAKECAB [Suspect]
     Active Substance: VONOPRAZAN FUMURATE
  3. MOSAPRIDA (MOSAPRIDE CITRATE) [Suspect]
     Active Substance: MOSAPRIDE CITRATE

REACTIONS (1)
  - Hepatic function abnormal [Recovering/Resolving]

NARRATIVE: CASE EVENT DATE: 201804
